FAERS Safety Report 16421787 (Version 4)
Quarter: 2023Q1

REPORT INFORMATION
  Report Type: Spontaneous
  Country: US (occurrence: None)
  Receive Date: 20190612
  Receipt Date: 20230221
  Transmission Date: 20230418
  Serious: Yes (Hospitalization, Other)
  Sender: FDA-Public Use
  Company Number: 2018SF22003

PATIENT
  Age: 721 Month
  Sex: Female
  Weight: 74.4 kg

DRUGS (44)
  1. PRILOSEC OTC [Suspect]
     Active Substance: OMEPRAZOLE MAGNESIUM
     Indication: Gastric pH decreased
     Route: 048
     Dates: start: 20150113, end: 20181231
  2. PRILOSEC OTC [Suspect]
     Active Substance: OMEPRAZOLE MAGNESIUM
     Indication: Gastrooesophageal reflux disease
     Route: 048
     Dates: start: 20150113, end: 20181231
  3. PRILOSEC OTC [Suspect]
     Active Substance: OMEPRAZOLE MAGNESIUM
     Indication: Gastric pH decreased
     Dosage: GENERIC
     Dates: start: 20150108, end: 20181231
  4. PRILOSEC OTC [Suspect]
     Active Substance: OMEPRAZOLE MAGNESIUM
     Indication: Gastrooesophageal reflux disease
     Dosage: GENERIC
     Dates: start: 20150108, end: 20181231
  5. OMEPRAZOLE [Suspect]
     Active Substance: OMEPRAZOLE
     Indication: Gastrooesophageal reflux disease
     Dates: start: 20150108, end: 20181231
  6. PREVACID [Suspect]
     Active Substance: LANSOPRAZOLE
     Indication: Gastric pH decreased
     Dates: start: 20150103, end: 20181231
  7. PREVACID [Suspect]
     Active Substance: LANSOPRAZOLE
     Indication: Gastrooesophageal reflux disease
     Dates: start: 20150103, end: 20181231
  8. PREVACID [Suspect]
     Active Substance: LANSOPRAZOLE
     Indication: Gastric pH decreased
     Dosage: GENERIC (LANSOPRAZOLE)
     Dates: start: 20150110, end: 20181231
  9. PREVACID [Suspect]
     Active Substance: LANSOPRAZOLE
     Indication: Gastrooesophageal reflux disease
     Dosage: GENERIC (LANSOPRAZOLE)
     Dates: start: 20150110, end: 20181231
  10. PROTONIX [Suspect]
     Active Substance: PANTOPRAZOLE SODIUM
     Indication: Gastric pH decreased
     Dates: start: 20160105, end: 20181231
  11. PROTONIX [Suspect]
     Active Substance: PANTOPRAZOLE SODIUM
     Indication: Gastrooesophageal reflux disease
     Dates: start: 20160105, end: 20181231
  12. PROTONIX [Suspect]
     Active Substance: PANTOPRAZOLE SODIUM
     Indication: Gastric pH decreased
     Dosage: GENERIC (PANTOPRAZOLE)
     Dates: start: 20170824
  13. PROTONIX [Suspect]
     Active Substance: PANTOPRAZOLE SODIUM
     Indication: Gastrooesophageal reflux disease
     Dosage: GENERIC (PANTOPRAZOLE)
     Dates: start: 20170824
  14. ZEGERID OTC [Suspect]
     Active Substance: OMEPRAZOLE\SODIUM BICARBONATE
     Indication: Gastrooesophageal reflux disease
     Dates: start: 20150120, end: 20181231
  15. RANITIDINE [Concomitant]
     Active Substance: RANITIDINE
     Dates: start: 2013, end: 2016
  16. LEXAPRO [Concomitant]
     Active Substance: ESCITALOPRAM OXALATE
  17. LISINOPRIL [Concomitant]
     Active Substance: LISINOPRIL
     Indication: Hypertension
     Dates: start: 20100317, end: 20101018
  18. AMLODIPINE [Concomitant]
     Active Substance: AMLODIPINE BESYLATE
     Indication: Hypertension
     Dates: start: 20160901, end: 20171211
  19. TRAZODONE [Concomitant]
     Active Substance: TRAZODONE HYDROCHLORIDE
     Indication: Depression
     Dates: start: 20070724
  20. TRAZODONE [Concomitant]
     Active Substance: TRAZODONE HYDROCHLORIDE
     Indication: Depression
     Dates: start: 20150403, end: 20161005
  21. NYSTATIN [Concomitant]
     Active Substance: NYSTATIN
     Dates: start: 20161104
  22. VALSARTAN [Concomitant]
     Active Substance: VALSARTAN
     Dates: start: 20170202
  23. ACETAMINOPHEN\HYDROCODONE BITARTRATE [Concomitant]
     Active Substance: ACETAMINOPHEN\HYDROCODONE BITARTRATE
     Dates: start: 20161014
  24. PREDNISONE [Concomitant]
     Active Substance: PREDNISONE
     Dates: start: 20140529
  25. ZOLPIDEM [Concomitant]
     Active Substance: ZOLPIDEM TARTRATE
     Dates: start: 20140506
  26. DICLOFENAC [Concomitant]
     Active Substance: DICLOFENAC
     Dates: start: 20140506
  27. CYCLOBENZAPRINE [Concomitant]
     Active Substance: CYCLOBENZAPRINE
     Indication: Muscle spasms
     Dates: start: 20140519
  28. CYCLOBENZAPRINE [Concomitant]
     Active Substance: CYCLOBENZAPRINE
     Indication: Muscle spasms
     Dates: start: 20140822, end: 20170629
  29. IBUPROFEN [Concomitant]
     Active Substance: IBUPROFEN
     Indication: Pain
     Dates: start: 2014, end: 2015
  30. LORATADINE [Concomitant]
     Active Substance: LORATADINE
     Dates: start: 20160415
  31. SERTRALINE [Concomitant]
     Active Substance: SERTRALINE HYDROCHLORIDE
     Dates: start: 20160719
  32. GABAPENTIN [Concomitant]
     Active Substance: GABAPENTIN
     Dates: start: 20160921
  33. QUETIAPINE [Concomitant]
     Active Substance: QUETIAPINE
  34. ZIPRASIDONE [Concomitant]
     Active Substance: ZIPRASIDONE
     Dates: start: 2013, end: 2016
  35. GEODON [Concomitant]
     Active Substance: ZIPRASIDONE HYDROCHLORIDE\ZIPRASIDONE MESYLATE
  36. DIVALPROEX SODIUM [Concomitant]
     Active Substance: DIVALPROEX SODIUM
  37. FLUCONAZOLE [Concomitant]
     Active Substance: FLUCONAZOLE
  38. MODAFINIL [Concomitant]
     Active Substance: MODAFINIL
  39. ESCITALOPRAM [Concomitant]
     Active Substance: ESCITALOPRAM OXALATE
  40. SELENIUM SULFIDE [Concomitant]
     Active Substance: SELENIUM SULFIDE
  41. TRIAMCINOLONE [Concomitant]
     Active Substance: TRIAMCINOLONE
  42. KETOCONAZOLE [Concomitant]
     Active Substance: KETOCONAZOLE
  43. METHOCARBAMOL [Concomitant]
     Active Substance: METHOCARBAMOL
  44. BENZTROPINE [Concomitant]
     Active Substance: BENZTROPINE

REACTIONS (8)
  - Acute kidney injury [Unknown]
  - Chronic kidney disease [Not Recovered/Not Resolved]
  - End stage renal disease [Unknown]
  - Renal failure [Unknown]
  - Renal injury [Unknown]
  - Tubulointerstitial nephritis [Unknown]
  - Dyspepsia [Unknown]
  - Gastrooesophageal reflux disease [Not Recovered/Not Resolved]

NARRATIVE: CASE EVENT DATE: 20160901
